FAERS Safety Report 7465607-6 (Version None)
Quarter: 2011Q2

REPORT INFORMATION
  Report Type: 
  Country: None (occurrence: None)
  Receive Date: 20110509
  Receipt Date: 20110506
  Transmission Date: 20111010
  Serious: Yes (Hospitalization, Other)
  Sender: FDA-Public Use
  Company Number: US-ROXANE LABORATORIES, INC.-2011-RO-00451RO

PATIENT
  Age: 70 Year
  Sex: Female
  Weight: 59 kg

DRUGS (19)
  1. PD-332,991 [Suspect]
     Indication: MULTIPLE MYELOMA
     Dosage: 100 MG
     Route: 048
     Dates: start: 20101018, end: 20101109
  2. ACYCLOVIR [Concomitant]
     Indication: INFECTION
     Dates: start: 20100108
  3. ZOLEDRONIC ACID [Concomitant]
     Indication: BONE DISORDER
     Dates: start: 20090101
  4. DEXAMETHASONE [Suspect]
     Dosage: 40 MG
     Route: 042
     Dates: start: 20101123, end: 20101126
  5. CISPLATIN [Suspect]
     Indication: MULTIPLE MYELOMA
     Dosage: 15 MG
     Route: 042
     Dates: start: 20101123, end: 20101126
  6. DARBEPOETIN ALFA [Concomitant]
     Indication: ANAEMIA
     Dates: start: 20100108
  7. TYLENOL W/ CODEINE NO. 3 [Concomitant]
     Indication: PAIN
     Dates: start: 20101018, end: 20101130
  8. ZITHROMAX [Concomitant]
     Indication: UPPER RESPIRATORY TRACT INFECTION
     Dates: start: 20101124, end: 20101126
  9. DEXAMETHASONE [Suspect]
     Indication: MULTIPLE MYELOMA
     Dosage: 20 MG
     Route: 048
     Dates: start: 20101025, end: 20101104
  10. PROCHLORPERAZINE MALEATE [Concomitant]
     Indication: NAUSEA
     Dates: start: 20100108
  11. BICITRA [Concomitant]
     Indication: PH URINE DECREASED
     Dates: start: 20101122, end: 20101130
  12. LEVAQUIN [Concomitant]
     Indication: URINARY TRACT INFECTION
     Dates: start: 20101117, end: 20101122
  13. BORTEZOMIB [Suspect]
     Indication: MULTIPLE MYELOMA
     Dosage: 1.7 MG
     Route: 042
     Dates: start: 20101025, end: 20101104
  14. FAMOTIDINE [Concomitant]
     Indication: GASTROOESOPHAGEAL REFLUX DISEASE
     Dates: start: 20100108
  15. LIDOCAINE [Concomitant]
     Indication: PAIN
     Dates: start: 20101018
  16. OXYCODONE [Concomitant]
     Indication: PAIN
     Dates: start: 20101025
  17. CYCLOPHOSPHAMIDE [Suspect]
     Indication: MULTIPLE MYELOMA
     Dosage: 608 MG
     Route: 042
     Dates: start: 20101123, end: 20101126
  18. ETOPOSIDE [Suspect]
     Indication: MULTIPLE MYELOMA
     Dosage: 61 MG
     Route: 042
     Dates: start: 20101123, end: 20101126
  19. FLUCONAZOLE [Concomitant]
     Indication: INFECTION
     Dates: start: 20100108

REACTIONS (9)
  - URINARY TRACT INFECTION [None]
  - ANTIBIOTIC RESISTANT STAPHYLOCOCCUS TEST POSITIVE [None]
  - UPPER RESPIRATORY TRACT INFECTION [None]
  - MENTAL STATUS CHANGES [None]
  - ASTHENIA [None]
  - PANCYTOPENIA [None]
  - INFLUENZA [None]
  - ACUTE SINUSITIS [None]
  - PNEUMONIA [None]
